FAERS Safety Report 11245755 (Version 1)
Quarter: 2015Q3

REPORT INFORMATION
  Report Type: Spontaneous
  Country: US (occurrence: US)
  Receive Date: 20150707
  Receipt Date: 20150707
  Transmission Date: 20151125
  Serious: Yes (Other)
  Sender: FDA-Public Use
  Company Number: US-AMEDRA PHARMACEUTICALS LLC-2015AMD00125

PATIENT
  Age: 16 Year
  Sex: Male

DRUGS (16)
  1. LIDOCAINE. [Suspect]
     Active Substance: LIDOCAINE
     Dosage: 2 %, LOCAL INFILTRATION
  2. REMIFENTANYL [Concomitant]
     Active Substance: REMIFENTANIL
  3. MIDAZOLAM [Concomitant]
     Active Substance: MIDAZOLAM\MIDAZOLAM HYDROCHLORIDE
     Dosage: 2 MG, UNK
  4. FENTANYL. [Concomitant]
     Active Substance: FENTANYL
     Dosage: 250 ?G, UNK
  5. PROPOFOL. [Concomitant]
     Active Substance: PROPOFOL
  6. METHYLPREDNISOLONE. [Concomitant]
     Active Substance: METHYLPREDNISOLONE
     Dosage: 125 MG, EVERY 4 HOURS
  7. NITROPRUSSIDE [Concomitant]
     Active Substance: NITROPRUSSIDE
  8. CISATRACURIUM. [Concomitant]
     Active Substance: CISATRACURIUM
  9. ROCURONIUM [Concomitant]
     Active Substance: ROCURONIUM BROMIDE
  10. PHENYLEPHRINE [Concomitant]
     Active Substance: PHENYLEPHRINE\PHENYLEPHRINE HYDROCHLORIDE
  11. MORPHINE [Concomitant]
     Active Substance: MORPHINE
     Dosage: 10 MG, UNK
  12. METHYLPREDNISOLONE. [Concomitant]
     Active Substance: METHYLPREDNISOLONE
     Dosage: 80 MG, ONCE
  13. ONDANSETRON [Concomitant]
     Active Substance: ONDANSETRON
     Dosage: 4 MG, UNK
  14. DROPERIDOL. [Concomitant]
     Active Substance: DROPERIDOL
     Dosage: 0.625 MG, UNK
  15. EPINEPHRINE. [Suspect]
     Active Substance: EPINEPHRINE
     Indication: OSTEOTOMY
     Dosage: 1:100,000, LOCAL INFILTRATION
  16. OXYMETAZOLINE [Concomitant]
     Active Substance: OXYMETAZOLINE

REACTIONS (5)
  - Pupil fixed [Recovered/Resolved]
  - Ophthalmoplegia [Recovered/Resolved]
  - Exophthalmos [Recovered/Resolved]
  - Pupils unequal [Recovered/Resolved]
  - Eyelid ptosis [Recovered/Resolved]
